FAERS Safety Report 4677922-X (Version None)
Quarter: 2005Q2

REPORT INFORMATION
  Report Type: 
  Country: None (occurrence: None)
  Receive Date: 20050527
  Receipt Date: 20050527
  Transmission Date: 20051028
  Serious: Yes (Hospitalization)
  Sender: FDA-Public Use
  Company Number: None

PATIENT
  Sex: Female
  Weight: 98.8842 kg

DRUGS (10)
  1. ZELNORM [Suspect]
     Indication: CONSTIPATION
     Dosage: 6MG PO BID
     Route: 048
  2. ZELNORM [Suspect]
     Indication: IRRITABLE BOWEL SYNDROME
     Dosage: 6MG PO BID
     Route: 048
  3. LAMICTAL [Concomitant]
  4. PHENERGAN [Concomitant]
  5. REGLAN [Concomitant]
  6. LORAZEPAM [Concomitant]
  7. AMBIEN [Concomitant]
  8. RANITIDINE [Concomitant]
  9. LONOX [Concomitant]
  10. FLONASE [Concomitant]

REACTIONS (6)
  - ABDOMINAL PAIN [None]
  - DIARRHOEA [None]
  - ILEOSTOMY [None]
  - NAUSEA [None]
  - VOMITING [None]
  - WEIGHT DECREASED [None]
